FAERS Safety Report 17115945 (Version 1)
Quarter: 2019Q4

REPORT INFORMATION
  Report Type: Spontaneous
  Country: US (occurrence: US)
  Receive Date: 20191204
  Receipt Date: 20191204
  Transmission Date: 20200122
  Serious: Yes (Hospitalization)
  Sender: FDA-Public Use
  Company Number: None

PATIENT
  Age: 82 Year
  Sex: Male
  Weight: 106.1 kg

DRUGS (10)
  1. LEVOTHYROXINE 112MCG DAILY [Concomitant]
  2. ALLOPURINOL 300MG DAILY [Concomitant]
  3. BUPROPION 150MG DAILY [Concomitant]
  4. DULOXETINE 60MG DAILY [Concomitant]
  5. SIMVASTATIN 20MG DAILY [Concomitant]
  6. DILTAZEM 240MG DAILY [Concomitant]
  7. INSULIN GLARGINE 15 UNITS DAILY [Concomitant]
  8. TAMSULOSIN 0.4MG DAILY [Concomitant]
  9. RIVAROXABAN [Suspect]
     Active Substance: RIVAROXABAN
     Indication: ATRIAL FIBRILLATION
     Route: 048
  10. CELECOXIB 200MG DAILY [Concomitant]

REACTIONS (5)
  - Pain in extremity [None]
  - Fall [None]
  - Skin discolouration [None]
  - Ecchymosis [None]
  - Peripheral swelling [None]

NARRATIVE: CASE EVENT DATE: 20141128
